FAERS Safety Report 3894168 (Version 2)
Quarter: 2019Q3

REPORT INFORMATION
  Report Type: Spontaneous
  Country: DE (occurrence: DE)
  Receive Date: 20030123
  Receipt Date: 20190820
  Transmission Date: 20191005
  Serious: Yes (Hospitalization)
  Sender: FDA-Public Use
  Company Number: PHBS2003DE00603

PATIENT
  Age: 50 Year
  Sex: Male

DRUGS (13)
  1. BROMOCRIPTINE MESYLATE [Suspect]
     Active Substance: BROMOCRIPTINE MESYLATE
     Indication: PARKINSONISM
     Dosage: 10 MG, TID
     Route: 048
  2. BROMOCRIPTINE MESYLATE [Suspect]
     Active Substance: BROMOCRIPTINE MESYLATE
     Dosage: 7.5 MG, TID
     Route: 048
  3. LEVODOPA+BENSERAZIDE [Suspect]
     Active Substance: BENSERAZIDE\LEVODOPA
     Dosage: 6 UNK, QD
     Route: 065
  4. BROMOCRIPTINE MESYLATE [Suspect]
     Active Substance: BROMOCRIPTINE MESYLATE
     Dosage: 22.5 MG, QD
     Route: 065
  5. LEVODOPA+BENSERAZIDE [Suspect]
     Active Substance: BENSERAZIDE\LEVODOPA
     Dosage: 500 MG, QD
     Route: 065
  6. ENTACAPONE. [Concomitant]
     Active Substance: ENTACAPONE
     Indication: PARKINSONISM
     Dosage: 1200 MG, UNK
     Route: 065
  7. LEVODOPA+BENSERAZIDE [Suspect]
     Active Substance: BENSERAZIDE\LEVODOPA
     Dosage: 125 MG, QID
     Route: 048
  8. BROMOCRIPTINE MESYLATE [Suspect]
     Active Substance: BROMOCRIPTINE MESYLATE
     Dosage: 30 MG, QD
     Route: 065
  9. LEVODOPA+BENSERAZIDE [Suspect]
     Active Substance: BENSERAZIDE\LEVODOPA
     Indication: PARKINSONISM
     Dosage: 125 MG, 6QD
     Route: 048
  10. BROMOCRIPTINE MESYLATE [Suspect]
     Active Substance: BROMOCRIPTINE MESYLATE
     Dosage: 10-7.5-10 MG/DAY
     Route: 048
  11. BROMOCRIPTINE MESYLATE [Suspect]
     Active Substance: BROMOCRIPTINE MESYLATE
     Dosage: 30 MG, UNK
     Route: 065
  12. PERGOLIDE [Suspect]
     Active Substance: PERGOLIDE
     Indication: PARKINSONISM
     Dosage: 1 - 0.75 - 1 MG/DAY
     Route: 048
  13. SELEGILINE [Concomitant]
     Active Substance: SELEGILINE
     Indication: PARKINSONISM
     Dosage: 15 MG, UNK
     Route: 065

REACTIONS (13)
  - Neuroleptic malignant syndrome [Recovering/Resolving]
  - Dysphonia [Recovering/Resolving]
  - Dysphagia [Recovering/Resolving]
  - Nausea [Unknown]
  - Hyperhidrosis [Recovering/Resolving]
  - Agitation [Recovering/Resolving]
  - Muscle rigidity [Recovering/Resolving]
  - Blood creatine phosphokinase increased [Recovering/Resolving]
  - Pyrexia [Recovering/Resolving]
  - Drug ineffective [Recovering/Resolving]
  - Akinesia [Recovering/Resolving]
  - Hypotension [Unknown]
  - Headache [Unknown]
